FAERS Safety Report 6561021-6 (Version None)
Quarter: 2010Q1

REPORT INFORMATION
  Report Type: 
  Country: None (occurrence: None)
  Receive Date: 20100130
  Receipt Date: 20091008
  Transmission Date: 20100710
  Serious: No
  Sender: FDA-Public Use
  Company Number: US-ABBOTT-09P-163-0601581-00

PATIENT
  Sex: Female
  Weight: 61.29 kg

DRUGS (13)
  1. HUMIRA [Suspect]
     Indication: RHEUMATOID ARTHRITIS
     Dates: start: 20090801
  2. PEG-INTRON [Concomitant]
     Indication: HEPATITIS C
  3. RIBAVIRIN [Concomitant]
     Indication: HEPATITIS C
  4. VICOPROPHEN [Concomitant]
     Indication: PAIN
  5. OXYCONTIN [Concomitant]
     Indication: PAIN
  6. EFFEXOR [Concomitant]
     Indication: DEPRESSION
  7. FLEXERIL [Concomitant]
     Indication: PAIN
  8. TRAZODONE HCL [Concomitant]
     Indication: INSOMNIA
  9. PREVACID [Concomitant]
     Indication: DYSPEPSIA
  10. ZANTAC [Concomitant]
     Indication: GASTROOESOPHAGEAL REFLUX DISEASE
  11. XANAX [Concomitant]
     Indication: ANXIETY
  12. ABILIFY [Concomitant]
     Indication: DEPRESSION
  13. NEUPOGEN [Concomitant]

REACTIONS (2)
  - INJECTION SITE PAIN [None]
  - PAIN IN EXTREMITY [None]
